FAERS Safety Report 16102869 (Version 1)
Quarter: 2019Q1

REPORT INFORMATION
  Report Type: Spontaneous
  Country: US (occurrence: US)
  Receive Date: 20190321
  Receipt Date: 20190321
  Transmission Date: 20190418
  Serious: No
  Sender: FDA-Public Use
  Company Number: US-ASTRAZENECA-2019SE32201

PATIENT
  Age: 14903 Day
  Sex: Male

DRUGS (1)
  1. SYMBICORT [Suspect]
     Active Substance: BUDESONIDE\FORMOTEROL FUMARATE DIHYDRATE
     Indication: RESPIRATION ABNORMAL
     Dosage: SYMBICORT 160/4.5 MCG, FOR BREATHING, UNKNOWN DOSE, FREQUENCY, UNKNOWN
     Route: 055
     Dates: start: 2015

REACTIONS (4)
  - Asthma [Unknown]
  - Device issue [Unknown]
  - Intentional device misuse [Unknown]
  - Product use issue [Unknown]

NARRATIVE: CASE EVENT DATE: 20190218
